FAERS Safety Report 23690622 (Version 2)
Quarter: 2024Q2

REPORT INFORMATION
  Report Type: Spontaneous
  Country: JP (occurrence: JP)
  Receive Date: 20240401
  Receipt Date: 20240405
  Transmission Date: 20240716
  Serious: No
  Sender: FDA-Public Use
  Company Number: JP-MSD-M2024-11892

PATIENT
  Age: 4 Decade
  Sex: Female

DRUGS (1)
  1. LAGEVRIO [Suspect]
     Active Substance: MOLNUPIRAVIR
     Indication: COVID-19 treatment
     Dosage: 400 MILLIGRAM, ONE CAPSULE IN THE MORNING, THEN ANOTHER ONE
     Route: 048
     Dates: start: 20240326

REACTIONS (2)
  - Nausea [Unknown]
  - Underdose [Unknown]

NARRATIVE: CASE EVENT DATE: 20240326
